FAERS Safety Report 7199150-9 (Version None)
Quarter: 2010Q4

REPORT INFORMATION
  Report Type: 
  Country: None (occurrence: None)
  Receive Date: 20101214
  Receipt Date: 20101207
  Transmission Date: 20110411
  Serious: Yes (Other)
  Sender: FDA-Public Use
  Company Number: CIP10003013

PATIENT
  Age: 61 Year
  Sex: Female

DRUGS (6)
  1. ACTONEL [Suspect]
     Dosage: 35 MG ONCE WEEKLY, ORAL
     Route: 048
     Dates: start: 20050101
  2. TOPROL-XL [Concomitant]
  3. BENICAR [Concomitant]
  4. CALTRATE /00108001/ (CALCIUM CARBONATE) [Concomitant]
  5. CRESTOR [Concomitant]
  6. PLAVIX [Concomitant]

REACTIONS (10)
  - ABDOMINAL PAIN [None]
  - DIARRHOEA [None]
  - DYSGEUSIA [None]
  - GINGIVAL SWELLING [None]
  - HAEMATOCHEZIA [None]
  - HEADACHE [None]
  - JAW DISORDER [None]
  - LYMPHADENOPATHY [None]
  - PURULENT DISCHARGE [None]
  - TOOTH LOSS [None]
